FAERS Safety Report 18084314 (Version 1)
Quarter: 2020Q3

REPORT INFORMATION
  Report Type: Spontaneous
  Country: US (occurrence: US)
  Receive Date: 20200728
  Receipt Date: 20200728
  Transmission Date: 20201103
  Serious: No
  Sender: FDA-Public Use
  Company Number: US-PERRIGO-20US002519

PATIENT
  Age: 26 Year
  Sex: Female
  Weight: 90.7 kg

DRUGS (4)
  1. MINOXIDIL. [Suspect]
     Active Substance: MINOXIDIL
     Indication: ALOPECIA
     Dosage: 1 ML, BID
     Route: 061
     Dates: start: 20200207, end: 20200211
  2. ZINC. [Concomitant]
     Active Substance: ZINC
     Indication: ALOPECIA
     Dosage: UNK
     Route: 065
     Dates: start: 202001
  3. VITAMIN B6 [Concomitant]
     Active Substance: PYRIDOXINE HYDROCHLORIDE
     Indication: ALOPECIA
     Dosage: UNK
     Route: 065
     Dates: start: 202001
  4. FINASTERIDE. [Concomitant]
     Active Substance: FINASTERIDE
     Indication: ALOPECIA
     Dosage: UNK
     Route: 065
     Dates: start: 202001

REACTIONS (2)
  - Off label use [Recovered/Resolved]
  - Hair colour changes [Recovered/Resolved]

NARRATIVE: CASE EVENT DATE: 20200207
